FAERS Safety Report 16108483 (Version 2)
Quarter: 2019Q2

REPORT INFORMATION
  Report Type: Spontaneous
  Country: US (occurrence: US)
  Receive Date: 20190323
  Receipt Date: 20190426
  Transmission Date: 20190711
  Serious: No
  Sender: FDA-Public Use
  Company Number: US-JNJFOC-20190236621

PATIENT
  Age: 60 Year
  Sex: Female
  Weight: 68.04 kg

DRUGS (2)
  1. ROGAINE [Suspect]
     Active Substance: MINOXIDIL
     Indication: ALOPECIA
     Dosage: FOLLOWED THE BOOKLET DIRECTIONS FOLLOWED THE BOOKLET DIRECTIONS
     Route: 061
     Dates: start: 20180501, end: 20180903
  2. ROGAINE [Suspect]
     Active Substance: MINOXIDIL
     Indication: ALOPECIA
     Dosage: FOLLOWED THE BOOKLET DIRECTIONS FOLLOWED THE BOOKLET DIRECTIONS
     Route: 061
     Dates: start: 20180501, end: 20180903

REACTIONS (4)
  - Hair growth abnormal [Recovered/Resolved]
  - Product use in unapproved indication [Unknown]
  - Adverse event [Recovered/Resolved]
  - Cardiac disorder [Recovered/Resolved]

NARRATIVE: CASE EVENT DATE: 20180601
